FAERS Safety Report 20632207 (Version 1)
Quarter: 2022Q1

REPORT INFORMATION
  Report Type: Spontaneous
  Country: SA (occurrence: SA)
  Receive Date: 20220324
  Receipt Date: 20220324
  Transmission Date: 20220423
  Serious: Yes (Congenital Anomaly)
  Sender: FDA-Public Use
  Company Number: SA-NOVARTISPH-NVSC2022SA062756

PATIENT

DRUGS (1)
  1. CARBAMAZEPINE [Suspect]
     Active Substance: CARBAMAZEPINE
     Indication: Foetal exposure during pregnancy
     Dosage: MATENAL DOSE: 1400 MG, QD
     Route: 064

REACTIONS (3)
  - Mucopolysaccharidosis IV [Unknown]
  - Bone development abnormal [Unknown]
  - Foetal exposure during pregnancy [Unknown]
